FAERS Safety Report 5154479-0 (Version None)
Quarter: 2006Q4

REPORT INFORMATION
  Report Type: 
  Country: None (occurrence: None)
  Receive Date: 20061114
  Receipt Date: 20061113
  Transmission Date: 20070319
  Serious: Yes (Hospitalization)
  Sender: FDA-Public Use
  Company Number: 2006122711

PATIENT
  Age: 43 Year
  Sex: Male

DRUGS (8)
  1. IRINOTECAN HCL [Suspect]
     Indication: COLON CANCER
     Dosage: SEE IMAGE, INTRAVENOUS
     Route: 042
     Dates: start: 19950105, end: 19950105
  2. IRINOTECAN HCL [Suspect]
     Indication: COLON CANCER
     Dosage: SEE IMAGE, INTRAVENOUS
     Route: 042
     Dates: start: 19950202, end: 19950202
  3. ACENOCOUMAROL      (ACENOCOUMAROL) [Concomitant]
  4. ACETORPHAN            (ACETORPHAN) [Concomitant]
  5. AMOXICILLIN [Concomitant]
  6. MORPHINE [Concomitant]
  7. OFLOXACIN [Concomitant]
  8. PYRIDOSTIGMINE                 (PYRIDOSTIGMINE) [Concomitant]

REACTIONS (6)
  - INTESTINAL OBSTRUCTION [None]
  - LUNG DISORDER [None]
  - NEOPLASM PROGRESSION [None]
  - PERICARDIAL EFFUSION [None]
  - PERICARDITIS [None]
  - VIRAL INFECTION [None]
